FAERS Safety Report 5028357-1 (Version None)
Quarter: 2006Q2

REPORT INFORMATION
  Report Type: 
  Country: None (occurrence: None)
  Receive Date: 20060503
  Receipt Date: 20060223
  Transmission Date: 20061013
  Serious: No
  Sender: FDA-Public Use
  Company Number: FACT0600101

PATIENT
  Age: 49 Year
  Sex: Male
  Weight: 106.6 kg

DRUGS (4)
  1. FACTIVE [Suspect]
     Indication: RESPIRATORY TRACT INFECTION BACTERIAL
     Dosage: 320 MG, QD, ORAL
     Route: 048
     Dates: start: 20060221, end: 20060101
  2. METHYLPREDNISOLONE [Suspect]
     Indication: SINUSITIS
     Dosage: 4 MG, QD, ORAL
     Route: 048
     Dates: start: 20060221, end: 20060101
  3. LISINOPRIL W/HYDROCHLOROTHIAZIDE (HYDROCHLOROTHIAZIDE, LISINOPRIL) [Concomitant]
  4. CRESTOR [Concomitant]

REACTIONS (1)
  - FLUSHING [None]
